FAERS Safety Report 20543522 (Version 2)
Quarter: 2022Q2

REPORT INFORMATION
  Report Type: Spontaneous
  Country: US (occurrence: None)
  Receive Date: 20220302
  Receipt Date: 20220418
  Transmission Date: 20220721
  Serious: No
  Sender: FDA-Public Use
  Company Number: 2022A093021

PATIENT
  Sex: Male
  Weight: 5.9 kg

DRUGS (1)
  1. NEXIUM [Suspect]
     Active Substance: ESOMEPRAZOLE MAGNESIUM
     Indication: Erosive oesophagitis
     Route: 048
     Dates: start: 2022

REACTIONS (6)
  - Irritability [Not Recovered/Not Resolved]
  - Infantile spitting up [Not Recovered/Not Resolved]
  - Gastrointestinal sounds abnormal [Not Recovered/Not Resolved]
  - Flatulence [Not Recovered/Not Resolved]
  - Wrong technique in product usage process [Unknown]
  - Drug effect less than expected [Unknown]
